FAERS Safety Report 17458568 (Version 1)
Quarter: 2020Q1

REPORT INFORMATION
  Report Type: Spontaneous
  Country: US (occurrence: US)
  Receive Date: 20200225
  Receipt Date: 20200225
  Transmission Date: 20200409
  Serious: No
  Sender: FDA-Public Use
  Company Number: US-JUBILANT CADISTA PHARMACEUTICALS-2019JUB00437

PATIENT
  Age: 82 Year
  Sex: Female
  Weight: 62.59 kg

DRUGS (5)
  1. UNSPECIFIED ACID REFLUX MEDICATION [Concomitant]
     Dosage: UNK, AS NEEDED
  2. LIPITOR [Concomitant]
     Active Substance: ATORVASTATIN CALCIUM
     Dosage: UNK, 2X/WEEK
  3. FIBER SUPPLEMENT [Concomitant]
     Active Substance: DIETARY SUPPLEMENT
  4. VALSARTAN. [Suspect]
     Active Substance: VALSARTAN
     Indication: HYPERTENSION
     Dosage: 320 MG, 1X/DAY
     Route: 048
     Dates: start: 20191110
  5. ATENOLOL. [Concomitant]
     Active Substance: ATENOLOL

REACTIONS (6)
  - Fear of death [Recovered/Resolved]
  - Arthralgia [Recovered/Resolved]
  - Product use complaint [Not Recovered/Not Resolved]
  - Myalgia [Recovered/Resolved]
  - Gait inability [Recovered/Resolved]
  - Blood pressure decreased [Unknown]

NARRATIVE: CASE EVENT DATE: 201911
